FAERS Safety Report 24275792 (Version 3)
Quarter: 2024Q4

REPORT INFORMATION
  Report Type: Report from Study
  Country: CA (occurrence: CA)
  Receive Date: 20240903
  Receipt Date: 20241111
  Transmission Date: 20250114
  Serious: Yes (Hospitalization, Other)
  Sender: JOHNSON AND JOHNSON
  Company Number: CA-JNJFOC-20240880161

PATIENT
  Age: 57 Year
  Sex: Female

DRUGS (5)
  1. REMICADE [Suspect]
     Active Substance: INFLIXIMAB
     Indication: Crohn^s disease
     Dosage: EXPIRY DATE: 10/2026
     Route: 041
     Dates: start: 20180419
  2. IMURAN [Concomitant]
     Active Substance: AZATHIOPRINE
     Dosage: DAILY
  3. IMURAN [Concomitant]
     Active Substance: AZATHIOPRINE
     Dosage: DAILY
  4. SYNTHROID [Concomitant]
     Active Substance: LEVOTHYROXINE SODIUM
     Dosage: 150 MCG
  5. LOMOTIL [Concomitant]
     Active Substance: ATROPINE SULFATE\DIPHENOXYLATE HYDROCHLORIDE

REACTIONS (3)
  - Gastrointestinal obstruction [Recovered/Resolved]
  - Intestinal obstruction [Not Recovered/Not Resolved]
  - Gallbladder obstruction [Recovered/Resolved]

NARRATIVE: CASE EVENT DATE: 20240807
